FAERS Safety Report 7656301-7 (Version None)
Quarter: 2011Q3

REPORT INFORMATION
  Report Type: 
  Country: None (occurrence: None)
  Receive Date: 20110804
  Receipt Date: 20110721
  Transmission Date: 20111222
  Serious: Yes (Disabling)
  Sender: FDA-Public Use
  Company Number: AU-B.I. PHARMACEUTICALS,INC./RIDGEFIELD-2011-AU-00662AU

PATIENT
  Sex: Male
  Weight: 87 kg

DRUGS (8)
  1. MICARDIS [Suspect]
     Dosage: 40 MG
  2. BRIMONIDINE TARTRATE [Concomitant]
     Dosage: 1.5 MG/ML (5ML) ONE DROP BD
     Route: 061
  3. TIMOLOL (AND BIMATOPROST COMBINATION) [Concomitant]
     Dosage: 3 ML ONE DROP NOCTE RIGHT EYE
     Route: 061
  4. (TIMOLOL AND) BIMATOPROST (COMBINATION) [Concomitant]
     Dosage: 3 ML ONE DROP NOCTE RIGHT EYE
     Route: 061
  5. SIMVASTATIN [Concomitant]
     Dosage: 10 MG
  6. SOTALOL HCL [Concomitant]
     Dosage: 80 MG
  7. LATANOPROST [Concomitant]
     Dosage: 50 MCG/ML (2.5ML) ONE DROP DAILY LEFT EYE
     Route: 061
  8. PRADAXA [Suspect]
     Indication: ATRIAL FIBRILLATION
     Dosage: 220 MG
     Dates: start: 20110620, end: 20110712

REACTIONS (1)
  - HAEMATURIA [None]
